FAERS Safety Report 17038923 (Version 1)
Quarter: 2019Q4

REPORT INFORMATION
  Report Type: Spontaneous
  Country: US (occurrence: US)
  Receive Date: 20191115
  Receipt Date: 20191115
  Transmission Date: 20200122
  Serious: Yes (Life-Threatening)
  Sender: FDA-Public Use
  Company Number: US-SHIRE-US201938956

PATIENT

DRUGS (2)
  1. NATPARA (PARATHYROID HORMONE) [Suspect]
     Active Substance: PARATHYROID HORMONE
     Indication: CONGENITAL HYPOPARATHYROIDISM
     Dosage: 50 MICROGRAM
     Route: 065
  2. CALCITRIOL. [Concomitant]
     Active Substance: CALCITRIOL
     Indication: CONGENITAL HYPOPARATHYROIDISM

REACTIONS (4)
  - Flank pain [Unknown]
  - Impaired quality of life [Unknown]
  - Recalled product [Unknown]
  - Fatigue [Unknown]
